FAERS Safety Report 6603206-6 (Version None)
Quarter: 2010Q1

REPORT INFORMATION
  Report Type: 
  Country: None (occurrence: None)
  Receive Date: 20100219
  Receipt Date: 20100210
  Transmission Date: 20100710
  Serious: Yes (Death)
  Sender: FDA-Public Use
  Company Number: 502408

PATIENT
  Age: 81 Year
  Sex: Female
  Weight: 68 kg

DRUGS (11)
  1. HEPARIN SODIUM INJECTION [Suspect]
     Indication: DRUG USE FOR UNKNOWN INDICATION
     Dosage: INTRAVENOUS
     Route: 042
  2. ACTONEL [Concomitant]
  3. ASPIRIN [Concomitant]
  4. DICLOFENAC [Concomitant]
  5. FAMOTIDINE [Concomitant]
  6. HYDRALAZINE HCL [Concomitant]
  7. HYDROCHLOROTHIAZIDE [Concomitant]
  8. LIPITOR [Concomitant]
  9. LOVENOX [Concomitant]
  10. METOPROLOL TARTRATE [Concomitant]
  11. NITRO-DUR [Concomitant]

REACTIONS (4)
  - ABDOMINAL PAIN LOWER [None]
  - DEPRESSED LEVEL OF CONSCIOUSNESS [None]
  - INTERNATIONAL NORMALISED RATIO INCREASED [None]
  - RETROPERITONEAL HAEMORRHAGE [None]
